FAERS Safety Report 4725697-8 (Version None)
Quarter: 2005Q3

REPORT INFORMATION
  Report Type: 
  Country: None (occurrence: None)
  Receive Date: 20050722
  Receipt Date: 20050722
  Transmission Date: 20060218
  Serious: Yes (Hospitalization)
  Sender: FDA-Public Use
  Company Number: None

PATIENT
  Age: 31 Year
  Sex: Female

DRUGS (1)
  1. BACTRIM [Suspect]
     Dates: start: 20040919, end: 20040926

REACTIONS (2)
  - DIARRHOEA [None]
  - URTICARIA [None]
